FAERS Safety Report 14305466 (Version 1)
Quarter: 2017Q4

REPORT INFORMATION
  Report Type: Spontaneous
  Country: US (occurrence: US)
  Receive Date: 20171219
  Receipt Date: 20171219
  Transmission Date: 20180321
  Serious: Yes (Hospitalization, Other)
  Sender: FDA-Public Use
  Company Number: US-OTSUKA-12494852

PATIENT
  Age: 2 Year
  Sex: Female

DRUGS (1)
  1. ABILIFY [Suspect]
     Active Substance: ARIPIPRAZOLE
     Indication: PRODUCT USED FOR UNKNOWN INDICATION
     Dosage: UNK
     Route: 048

REACTIONS (5)
  - Lethargy [Recovered/Resolved]
  - Medication error [Unknown]
  - Tremor [Not Recovered/Not Resolved]
  - Respiratory rate increased [Recovering/Resolving]
  - Accidental overdose [Unknown]
